FAERS Safety Report 4915124-X (Version None)
Quarter: 2006Q1

REPORT INFORMATION
  Report Type: 
  Country: None (occurrence: None)
  Receive Date: 20060217
  Receipt Date: 20060209
  Transmission Date: 20060701
  Serious: Yes (Hospitalization)
  Sender: FDA-Public Use
  Company Number: KR-AVENTIS-200611295GDDC

PATIENT
  Age: 73 Year
  Sex: Male
  Weight: 69 kg

DRUGS (8)
  1. TAXOTERE [Suspect]
     Indication: NON-SMALL CELL LUNG CANCER
     Route: 042
     Dates: start: 20060201, end: 20060201
  2. PHENIRAMINE [Concomitant]
     Dosage: DOSE: 4MG/2ML
     Route: 042
     Dates: start: 20051202, end: 20060201
  3. UNKNOWN DRUG [Concomitant]
     Indication: GASTRIC ULCER
     Route: 042
     Dates: start: 20051202, end: 20060201
  4. UNKNOWN DRUG [Concomitant]
     Indication: ASTHMA
     Route: 048
     Dates: start: 20051202
  5. SALBUTAMOL [Concomitant]
     Indication: ASTHMA
     Route: 048
     Dates: start: 20051202
  6. MEPTIN [Concomitant]
     Indication: ASTHMA
     Route: 048
     Dates: start: 20051202
  7. ERDOSTEINE [Concomitant]
     Route: 048
     Dates: start: 20051202
  8. PROSPAN [Concomitant]
     Route: 048
     Dates: start: 20051202, end: 20060208

REACTIONS (3)
  - CHRONIC OBSTRUCTIVE PULMONARY DISEASE [None]
  - COUGH [None]
  - DYSPNOEA [None]
